FAERS Safety Report 6267886-X (Version None)
Quarter: 2009Q3

REPORT INFORMATION
  Report Type: 
  Country: None (occurrence: None)
  Receive Date: 20090710
  Receipt Date: 20090710
  Transmission Date: 20100115
  Serious: Yes (Other)
  Sender: FDA-Public Use
  Company Number: None

PATIENT
  Age: 67 Year
  Sex: Female
  Weight: 61.6892 kg

DRUGS (2)
  1. LEVAQUIN [Suspect]
     Indication: INFLUENZA
     Dosage: 500MG 1 PER DAY PO
     Route: 048
     Dates: start: 20090210, end: 20090215
  2. LEVAQUIN [Suspect]
     Indication: NASOPHARYNGITIS
     Dosage: 500MG 1 PER DAY PO
     Route: 048
     Dates: start: 20090210, end: 20090215

REACTIONS (4)
  - ARTHRALGIA [None]
  - INJURY [None]
  - PAIN IN EXTREMITY [None]
  - TENDON RUPTURE [None]
